FAERS Safety Report 9688710 (Version 1)
Quarter: 2013Q4

REPORT INFORMATION
  Report Type: Spontaneous
  Country: US (occurrence: None)
  Receive Date: 20131113
  Receipt Date: 20131113
  Transmission Date: 20140711
  Serious: Yes (Hospitalization)
  Sender: FDA-Public Use
  Company Number: UTC-040096

PATIENT
  Age: 61 Year
  Sex: Female
  Weight: 52 kg

DRUGS (1)
  1. REMODULIN [Suspect]
     Indication: COR PULMONALE CHRONIC
     Dosage: 57.6 UK/KG (0.04 UG/KG, 1 IN 1 MIN) SUBCUTANEOUS
     Route: 058
     Dates: start: 20120519

REACTIONS (1)
  - Infusion site infection [None]
